FAERS Safety Report 7762252-X (Version None)
Quarter: 2011Q3

REPORT INFORMATION
  Report Type: 
  Country: None (occurrence: None)
  Receive Date: 20110919
  Receipt Date: 20110919
  Transmission Date: 20111222
  Serious: No
  Sender: FDA-Public Use
  Company Number: None

PATIENT
  Sex: Female
  Weight: 58.9676 kg

DRUGS (1)
  1. REBIF [Suspect]
     Dosage: 44MG TIW SQ
     Route: 058
     Dates: start: 20080930

REACTIONS (1)
  - WEIGHT DECREASED [None]
